FAERS Safety Report 18599838 (Version 1)
Quarter: 2020Q4

REPORT INFORMATION
  Report Type: Spontaneous
  Country: US (occurrence: US)
  Receive Date: 20201209
  Receipt Date: 20201209
  Transmission Date: 20210114
  Serious: Yes (Disabling, Other)
  Sender: FDA-Public Use
  Company Number: None

PATIENT
  Age: 69 Year
  Sex: Female
  Weight: 85.5 kg

DRUGS (1)
  1. ACTOS [Suspect]
     Active Substance: PIOGLITAZONE HYDROCHLORIDE
     Indication: DIABETES MELLITUS
     Dosage: ?          QUANTITY:1 TABLET(S);?
     Route: 048
     Dates: end: 20201128

REACTIONS (1)
  - Eye swelling [None]

NARRATIVE: CASE EVENT DATE: 20201128
